FAERS Safety Report 22231731 (Version 1)
Quarter: 2023Q2

REPORT INFORMATION
  Report Type: Spontaneous
  Country: US (occurrence: None)
  Receive Date: 20230420
  Receipt Date: 20230420
  Transmission Date: 20230722
  Serious: No
  Sender: FDA-Public Use
  Company Number: US-ROCHE-3142774

PATIENT
  Sex: Male

DRUGS (1)
  1. ESBRIET [Suspect]
     Active Substance: PIRFENIDONE
     Indication: Interstitial lung disease
     Dosage: ONGOING: YES
     Route: 048
     Dates: start: 202206, end: 202301

REACTIONS (9)
  - Dizziness [Recovered/Resolved]
  - Nausea [Unknown]
  - Abdominal pain upper [Recovered/Resolved]
  - Fatigue [Unknown]
  - Middle insomnia [Unknown]
  - Headache [Unknown]
  - Hypotension [Recovered/Resolved]
  - Gastrooesophageal reflux disease [Recovered/Resolved]
  - Fall [Unknown]
